FAERS Safety Report 13090598 (Version 2)
Quarter: 2017Q1

REPORT INFORMATION
  Report Type: Report from Study
  Country: FR (occurrence: FR)
  Receive Date: 20170105
  Receipt Date: 20170116
  Transmission Date: 20170428
  Serious: Yes (Death, Other)
  Sender: FDA-Public Use
  Company Number: FR-GILEAD-2016-0196492

PATIENT
  Age: 54 Year
  Sex: Male
  Weight: 83 kg

DRUGS (15)
  1. TENOFOVIR DISOPROXIL FUMARATE. [Suspect]
     Active Substance: TENOFOVIR DISOPROXIL FUMARATE
     Indication: HIV INFECTION
     Route: 065
  2. PREZISTA [Concomitant]
     Active Substance: DARUNAVIR ETHANOLATE
     Dosage: 800 UNK, UNK
     Route: 048
     Dates: start: 20151217, end: 20161221
  3. KARDEGIC [Concomitant]
     Active Substance: ASPIRIN LYSINE
  4. ETRAVIRINE [Concomitant]
     Active Substance: ETRAVIRINE
  5. DARUNAVIR W/RITONAVIR [Concomitant]
     Active Substance: DARUNAVIR\RITONAVIR
  6. AMLOR [Concomitant]
     Active Substance: AMLODIPINE BESYLATE
  7. RIVOTRIL [Concomitant]
     Active Substance: CLONAZEPAM
  8. PRAVASTATIN. [Concomitant]
     Active Substance: PRAVASTATIN
  9. ELVITEGRAVIR/COBICISTAT/EMTRICITABINE/TENOFOVIR ALAFENAMIDE [Suspect]
     Active Substance: COBICISTAT\ELVITEGRAVIR\EMTRICITABINE\TENOFOVIR
     Indication: HIV INFECTION
     Dosage: UNK
     Route: 048
     Dates: start: 20150818, end: 20160921
  10. INEXIUM                            /01479302/ [Concomitant]
     Active Substance: ESOMEPRAZOLE MAGNESIUM
  11. CARDENSIEL [Concomitant]
     Active Substance: BISOPROLOL FUMARATE
  12. VALDOXAN [Concomitant]
     Active Substance: AGOMELATINE
  13. NORVIR [Concomitant]
     Active Substance: RITONAVIR
     Dosage: 100 UNK, UNK
  14. PLAVIX [Concomitant]
     Active Substance: CLOPIDOGREL BISULFATE
  15. APROVEL [Concomitant]
     Active Substance: IRBESARTAN

REACTIONS (2)
  - Cardio-respiratory arrest [Fatal]
  - Off label use [Recovered/Resolved]

NARRATIVE: CASE EVENT DATE: 20161221
